FAERS Safety Report 7789129-8 (Version None)
Quarter: 2011Q3

REPORT INFORMATION
  Report Type: 
  Country: None (occurrence: None)
  Receive Date: 20110930
  Receipt Date: 20110920
  Transmission Date: 20111222
  Serious: Yes (Hospitalization)
  Sender: FDA-Public Use
  Company Number: US-JNJFOC-20110700857

PATIENT
  Sex: Male
  Weight: 68.04 kg

DRUGS (9)
  1. RISPERDAL CONSTA [Suspect]
     Indication: SCHIZOAFFECTIVE DISORDER
     Route: 030
     Dates: start: 20110101
  2. INVEGA [Suspect]
     Indication: SCHIZOAFFECTIVE DISORDER
     Dosage: EVERY AM
     Route: 048
     Dates: end: 20110401
  3. LITHIUM [Concomitant]
     Route: 065
  4. INVEGA SUSTENNA [Suspect]
     Route: 030
     Dates: start: 20110415
  5. WELLBUTRIN [Concomitant]
     Route: 065
  6. INVEGA SUSTENNA [Suspect]
     Indication: SCHIZOAFFECTIVE DISORDER
     Route: 030
     Dates: start: 20110513
  7. RISPERDAL [Suspect]
     Indication: SCHIZOAFFECTIVE DISORDER
     Dosage: EVERY PM
     Route: 048
     Dates: start: 20110401
  8. INVEGA SUSTENNA [Suspect]
     Route: 030
     Dates: start: 20110316
  9. RISPERDAL CONSTA [Suspect]
     Route: 030
     Dates: end: 20110301

REACTIONS (3)
  - CONDITION AGGRAVATED [None]
  - INCORRECT DOSE ADMINISTERED [None]
  - HYPOMANIA [None]
